FAERS Safety Report 9263603 (Version 2)
Quarter: 2014Q1

REPORT INFORMATION
  Report Type: Spontaneous
  Country: US (occurrence: None)
  Receive Date: 20121212
  Receipt Date: 20130314
  Transmission Date: 20141002
  Serious: No
  Sender: FDA-Public Use
  Company Number: 1210USA014645

PATIENT
  Age: 58 Year
  Sex: Female

DRUGS (7)
  1. VICTRELIS [Suspect]
     Route: 048
     Dates: start: 201208
  2. PEGASYS [Suspect]
     Route: 058
  3. RIBASPHERE [Suspect]
     Route: 048
  4. METFORMIN HYDROCHLORIDE [Concomitant]
  5. LISINOPRIL [Concomitant]
  6. ASPIRIN (ASPIRIN) [Concomitant]
  7. VITAMINS (UNSPECIFIED) [Concomitant]

REACTIONS (1)
  - Sinusitis [None]
